FAERS Safety Report 7887245-3 (Version None)
Quarter: 2011Q4

REPORT INFORMATION
  Report Type: 
  Country: None (occurrence: None)
  Receive Date: 20111102
  Receipt Date: 20110715
  Transmission Date: 20120403
  Serious: No
  Sender: FDA-Public Use
  Company Number: US-AMGEN-USASP2011036052

PATIENT
  Sex: Male

DRUGS (2)
  1. ENBREL [Suspect]
     Indication: PSORIASIS
  2. ENBREL [Suspect]
     Indication: PSORIATIC ARTHROPATHY
     Dosage: 25 MG, UNK
     Dates: start: 20041109

REACTIONS (5)
  - PARAESTHESIA [None]
  - TREMOR [None]
  - BLOOD TRIGLYCERIDES INCREASED [None]
  - PSORIASIS [None]
  - VISUAL IMPAIRMENT [None]
